FAERS Safety Report 25678425 (Version 1)
Quarter: 2025Q3

REPORT INFORMATION
  Report Type: Spontaneous
  Country: CA (occurrence: CA)
  Receive Date: 20250813
  Receipt Date: 20250813
  Transmission Date: 20251020
  Serious: Yes (Death, Other)
  Sender: BRISTOL-MYERS SQUIBB COMPANY
  Company Number: CA-BRISTOL-MYERS SQUIBB COMPANY-2025-112656

PATIENT
  Age: 40 Year
  Sex: Female
  Weight: 90 kg

DRUGS (437)
  1. ORENCIA [Suspect]
     Active Substance: ABATACEPT
     Indication: Rheumatoid arthritis
  2. ORENCIA [Suspect]
     Active Substance: ABATACEPT
  3. ORENCIA [Suspect]
     Active Substance: ABATACEPT
  4. ORENCIA [Suspect]
     Active Substance: ABATACEPT
  5. ORENCIA [Suspect]
     Active Substance: ABATACEPT
  6. ORENCIA [Suspect]
     Active Substance: ABATACEPT
  7. ORENCIA [Suspect]
     Active Substance: ABATACEPT
  8. ORENCIA [Suspect]
     Active Substance: ABATACEPT
  9. ORENCIA [Suspect]
     Active Substance: ABATACEPT
  10. ORENCIA [Suspect]
     Active Substance: ABATACEPT
  11. ORENCIA [Suspect]
     Active Substance: ABATACEPT
  12. ORENCIA [Suspect]
     Active Substance: ABATACEPT
  13. ORENCIA [Suspect]
     Active Substance: ABATACEPT
  14. ORENCIA [Suspect]
     Active Substance: ABATACEPT
  15. ORENCIA [Suspect]
     Active Substance: ABATACEPT
  16. ORENCIA [Suspect]
     Active Substance: ABATACEPT
  17. ORENCIA [Suspect]
     Active Substance: ABATACEPT
  18. ORENCIA [Suspect]
     Active Substance: ABATACEPT
  19. ORENCIA [Suspect]
     Active Substance: ABATACEPT
  20. ORENCIA [Suspect]
     Active Substance: ABATACEPT
  21. ORENCIA [Suspect]
     Active Substance: ABATACEPT
  22. ORENCIA [Suspect]
     Active Substance: ABATACEPT
  23. ORENCIA [Suspect]
     Active Substance: ABATACEPT
  24. ORENCIA [Suspect]
     Active Substance: ABATACEPT
  25. ORENCIA [Suspect]
     Active Substance: ABATACEPT
  26. ORENCIA [Suspect]
     Active Substance: ABATACEPT
  27. ORENCIA [Suspect]
     Active Substance: ABATACEPT
  28. ORENCIA [Suspect]
     Active Substance: ABATACEPT
  29. ORENCIA [Suspect]
     Active Substance: ABATACEPT
     Indication: Rheumatoid arthritis
     Route: 058
  30. ORENCIA [Suspect]
     Active Substance: ABATACEPT
     Route: 058
  31. ORENCIA [Suspect]
     Active Substance: ABATACEPT
     Route: 058
  32. ORENCIA [Suspect]
     Active Substance: ABATACEPT
     Route: 058
  33. TRIAMCINOLONE ACETONIDE [Suspect]
     Active Substance: TRIAMCINOLONE ACETONIDE
     Indication: Rheumatoid arthritis
     Route: 013
  34. ACETAMINOPHEN [Concomitant]
     Active Substance: ACETAMINOPHEN
     Indication: Rheumatoid arthritis
  35. ACETAMINOPHEN [Concomitant]
     Active Substance: ACETAMINOPHEN
  36. ACETAMINOPHEN [Concomitant]
     Active Substance: ACETAMINOPHEN
  37. ACETAMINOPHEN [Concomitant]
     Active Substance: ACETAMINOPHEN
  38. ACETAMINOPHEN AND CODEINE [Concomitant]
     Active Substance: ACETAMINOPHEN\CODEINE PHOSPHATE
     Indication: Rheumatoid arthritis
  39. ACETAMINOPHEN AND CODEINE [Concomitant]
     Active Substance: ACETAMINOPHEN\CODEINE PHOSPHATE
  40. ACTEMRA [Concomitant]
     Active Substance: TOCILIZUMAB
     Indication: Rheumatoid arthritis
     Route: 040
  41. ACTEMRA [Concomitant]
     Active Substance: TOCILIZUMAB
     Route: 040
  42. ACTEMRA [Concomitant]
     Active Substance: TOCILIZUMAB
     Route: 040
  43. ACTEMRA [Concomitant]
     Active Substance: TOCILIZUMAB
     Route: 040
  44. ACTEMRA [Concomitant]
     Active Substance: TOCILIZUMAB
     Route: 058
  45. ACTEMRA [Concomitant]
     Active Substance: TOCILIZUMAB
     Route: 042
  46. ACTEMRA [Concomitant]
     Active Substance: TOCILIZUMAB
     Route: 061
  47. ACTEMRA [Concomitant]
     Active Substance: TOCILIZUMAB
     Route: 040
  48. ACTEMRA [Concomitant]
     Active Substance: TOCILIZUMAB
     Route: 042
  49. ACTEMRA [Concomitant]
     Active Substance: TOCILIZUMAB
     Route: 042
  50. ACTEMRA [Concomitant]
     Active Substance: TOCILIZUMAB
     Route: 040
  51. ACTEMRA [Concomitant]
     Active Substance: TOCILIZUMAB
     Route: 042
  52. ACTEMRA [Concomitant]
     Active Substance: TOCILIZUMAB
     Route: 042
  53. ACTEMRA [Concomitant]
     Active Substance: TOCILIZUMAB
     Route: 042
  54. ACTEMRA [Concomitant]
     Active Substance: TOCILIZUMAB
     Route: 040
  55. ACTEMRA [Concomitant]
     Active Substance: TOCILIZUMAB
  56. ACTEMRA [Concomitant]
     Active Substance: TOCILIZUMAB
     Route: 058
  57. ACTEMRA [Concomitant]
     Active Substance: TOCILIZUMAB
     Route: 058
  58. ACTEMRA [Concomitant]
     Active Substance: TOCILIZUMAB
  59. ACTEMRA [Concomitant]
     Active Substance: TOCILIZUMAB
     Route: 058
  60. ACTEMRA [Concomitant]
     Active Substance: TOCILIZUMAB
     Route: 040
  61. ACTEMRA [Concomitant]
     Active Substance: TOCILIZUMAB
     Route: 016
  62. ACTEMRA [Concomitant]
     Active Substance: TOCILIZUMAB
     Route: 050
  63. ACTEMRA [Concomitant]
     Active Substance: TOCILIZUMAB
  64. ACTEMRA [Concomitant]
     Active Substance: TOCILIZUMAB
  65. ACTEMRA [Concomitant]
     Active Substance: TOCILIZUMAB
  66. ACTEMRA [Concomitant]
     Active Substance: TOCILIZUMAB
     Route: 016
  67. ACTEMRA [Concomitant]
     Active Substance: TOCILIZUMAB
     Route: 040
  68. ACTEMRA [Concomitant]
     Active Substance: TOCILIZUMAB
     Route: 041
  69. ACTEMRA [Concomitant]
     Active Substance: TOCILIZUMAB
     Route: 042
  70. ACTEMRA [Concomitant]
     Active Substance: TOCILIZUMAB
  71. ACTEMRA [Concomitant]
     Active Substance: TOCILIZUMAB
     Route: 058
  72. ACTEMRA [Concomitant]
     Active Substance: TOCILIZUMAB
     Route: 058
  73. ACTEMRA [Concomitant]
     Active Substance: TOCILIZUMAB
     Route: 058
  74. ADALIMUMAB [Concomitant]
     Active Substance: ADALIMUMAB
     Indication: Rheumatoid arthritis
     Route: 042
  75. ADALIMUMAB [Concomitant]
     Active Substance: ADALIMUMAB
     Route: 058
  76. ADALIMUMAB [Concomitant]
     Active Substance: ADALIMUMAB
     Route: 058
  77. ADALIMUMAB [Concomitant]
     Active Substance: ADALIMUMAB
     Route: 058
  78. ADALIMUMAB [Concomitant]
     Active Substance: ADALIMUMAB
     Route: 042
  79. ADALIMUMAB [Concomitant]
     Active Substance: ADALIMUMAB
     Route: 058
  80. AIMOVIG [Concomitant]
     Active Substance: ERENUMAB-AOOE
     Indication: Migraine
  81. AIMOVIG [Concomitant]
     Active Substance: ERENUMAB-AOOE
  82. AIMOVIG [Concomitant]
     Active Substance: ERENUMAB-AOOE
  83. AIMOVIG [Concomitant]
     Active Substance: ERENUMAB-AOOE
  84. ALENDRONATE SODIUM [Concomitant]
     Active Substance: ALENDRONATE SODIUM
     Indication: Rheumatoid arthritis
     Route: 016
  85. ALENDRONATE SODIUM [Concomitant]
     Active Substance: ALENDRONATE SODIUM
  86. ALENDRONATE SODIUM [Concomitant]
     Active Substance: ALENDRONATE SODIUM
  87. ALENDRONATE SODIUM [Concomitant]
     Active Substance: ALENDRONATE SODIUM
  88. ALENDRONATE SODIUM [Concomitant]
     Active Substance: ALENDRONATE SODIUM
     Route: 048
  89. ALENDRONATE SODIUM [Concomitant]
     Active Substance: ALENDRONATE SODIUM
     Route: 048
  90. PREDNISONE [Concomitant]
     Active Substance: PREDNISONE
     Indication: Rheumatoid arthritis
     Route: 048
  91. PREDNISONE [Concomitant]
     Active Substance: PREDNISONE
     Route: 048
  92. PREDNISONE [Concomitant]
     Active Substance: PREDNISONE
     Route: 048
  93. PREDNISONE [Concomitant]
     Active Substance: PREDNISONE
     Route: 048
  94. PREDNISONE [Concomitant]
     Active Substance: PREDNISONE
     Route: 048
  95. PREDNISONE [Concomitant]
     Active Substance: PREDNISONE
  96. PREDNISONE [Concomitant]
     Active Substance: PREDNISONE
     Route: 048
  97. PREDNISONE [Concomitant]
     Active Substance: PREDNISONE
     Route: 048
  98. PREDNISONE [Concomitant]
     Active Substance: PREDNISONE
     Route: 048
  99. ARAVA [Concomitant]
     Active Substance: LEFLUNOMIDE
     Indication: Rheumatoid arthritis
     Route: 048
  100. ARAVA [Concomitant]
     Active Substance: LEFLUNOMIDE
     Route: 048
  101. ARAVA [Concomitant]
     Active Substance: LEFLUNOMIDE
  102. ARAVA [Concomitant]
     Active Substance: LEFLUNOMIDE
     Route: 048
  103. ATOMOXETINE HYDROCHLORIDE [Concomitant]
     Active Substance: ATOMOXETINE HYDROCHLORIDE
     Indication: Migraine
  104. ATOMOXETINE HYDROCHLORIDE [Concomitant]
     Active Substance: ATOMOXETINE HYDROCHLORIDE
  105. ATOMOXETINE HYDROCHLORIDE [Concomitant]
     Active Substance: ATOMOXETINE HYDROCHLORIDE
  106. ATOMOXETINE HYDROCHLORIDE [Concomitant]
     Active Substance: ATOMOXETINE HYDROCHLORIDE
  107. ATOMOXETINE HYDROCHLORIDE [Concomitant]
     Active Substance: ATOMOXETINE HYDROCHLORIDE
  108. ATOMOXETINE HYDROCHLORIDE [Concomitant]
     Active Substance: ATOMOXETINE HYDROCHLORIDE
  109. AZATHIOPRINE SODIUM [Concomitant]
     Active Substance: AZATHIOPRINE SODIUM
     Indication: Rheumatoid arthritis
  110. AZATHIOPRINE SODIUM [Concomitant]
     Active Substance: AZATHIOPRINE SODIUM
  111. AZATHIOPRINE SODIUM [Concomitant]
     Active Substance: AZATHIOPRINE SODIUM
  112. AZATHIOPRINE SODIUM [Concomitant]
     Active Substance: AZATHIOPRINE SODIUM
  113. BERINERT [Concomitant]
     Active Substance: HUMAN C1-ESTERASE INHIBITOR
     Indication: Rheumatoid arthritis
  114. BERINERT [Concomitant]
     Active Substance: HUMAN C1-ESTERASE INHIBITOR
  115. BOTULINUM TOXIN TYPE A [Concomitant]
     Active Substance: BOTULINUM TOXIN TYPE A
     Indication: Product used for unknown indication
  116. BUTRANS [Concomitant]
     Active Substance: BUPRENORPHINE
     Indication: Product used for unknown indication
  117. BUTRANS [Concomitant]
     Active Substance: BUPRENORPHINE
  118. BUTRANS [Concomitant]
     Active Substance: BUPRENORPHINE
  119. CALCIUM [Concomitant]
     Active Substance: CALCIUM
     Indication: Product used for unknown indication
  120. CALCIUM ASCORBATE [Concomitant]
     Active Substance: CALCIUM ASCORBATE
     Indication: Product used for unknown indication
  121. CALCIUM ASCORBATE [Concomitant]
     Active Substance: CALCIUM ASCORBATE
  122. CALCIUM ASCORBATE [Concomitant]
     Active Substance: CALCIUM ASCORBATE
  123. CALCIUM CITRATE [Concomitant]
     Active Substance: CALCIUM CITRATE
     Indication: Product used for unknown indication
  124. CALCIUM GLUBIONATE [Concomitant]
     Active Substance: CALCIUM GLUBIONATE
     Indication: Product used for unknown indication
  125. CALCIUM GLUBIONATE [Concomitant]
     Active Substance: CALCIUM GLUBIONATE
     Route: 016
  126. CALCIUM GLUBIONATE [Concomitant]
     Active Substance: CALCIUM GLUBIONATE
  127. CANDESARTAN [Concomitant]
     Active Substance: CANDESARTAN
     Indication: Rheumatoid arthritis
  128. CANDESARTAN [Concomitant]
     Active Substance: CANDESARTAN
     Indication: Migraine
     Route: 048
  129. CANDESARTAN [Concomitant]
     Active Substance: CANDESARTAN
  130. CELECOXIB [Concomitant]
     Active Substance: CELECOXIB
     Indication: Product used for unknown indication
  131. CELECOXIB [Concomitant]
     Active Substance: CELECOXIB
  132. CELECOXIB [Concomitant]
     Active Substance: CELECOXIB
  133. CELECOXIB [Concomitant]
     Active Substance: CELECOXIB
  134. CELECOXIB [Concomitant]
     Active Substance: CELECOXIB
     Route: 048
  135. CELECOXIB [Concomitant]
     Active Substance: CELECOXIB
  136. CELECOXIB [Concomitant]
     Active Substance: CELECOXIB
     Route: 048
  137. CELECOXIB [Concomitant]
     Active Substance: CELECOXIB
  138. CETIRIZINE [Concomitant]
     Active Substance: CETIRIZINE HYDROCHLORIDE
     Indication: Rheumatoid arthritis
  139. CETIRIZINE [Concomitant]
     Active Substance: CETIRIZINE HYDROCHLORIDE
  140. CETIRIZINE [Concomitant]
     Active Substance: CETIRIZINE HYDROCHLORIDE
     Route: 048
  141. CETIRIZINE [Concomitant]
     Active Substance: CETIRIZINE HYDROCHLORIDE
     Route: 048
  142. CETIRIZINE [Concomitant]
     Active Substance: CETIRIZINE HYDROCHLORIDE
  143. CETIRIZINE [Concomitant]
     Active Substance: CETIRIZINE HYDROCHLORIDE
  144. CETIRIZINE [Concomitant]
     Active Substance: CETIRIZINE HYDROCHLORIDE
  145. CETIRIZINE [Concomitant]
     Active Substance: CETIRIZINE HYDROCHLORIDE
  146. CETIRIZINE [Concomitant]
     Active Substance: CETIRIZINE HYDROCHLORIDE
  147. CETIRIZINE [Concomitant]
     Active Substance: CETIRIZINE HYDROCHLORIDE
  148. CHLORHEXIDINE GLUCONATE [Concomitant]
     Active Substance: CHLORHEXIDINE GLUCONATE
     Indication: Rheumatoid arthritis
  149. CHLORHEXIDINE GLUCONATE [Concomitant]
     Active Substance: CHLORHEXIDINE GLUCONATE
     Route: 061
  150. CHLORHEXIDINE GLUCONATE [Concomitant]
     Active Substance: CHLORHEXIDINE GLUCONATE
  151. CHOLECALCIFEROL [Concomitant]
     Active Substance: CHOLECALCIFEROL
     Indication: Product used for unknown indication
  152. CIMZIA [Concomitant]
     Active Substance: CERTOLIZUMAB PEGOL
     Indication: Rheumatoid arthritis
     Route: 058
  153. CIMZIA [Concomitant]
     Active Substance: CERTOLIZUMAB PEGOL
     Route: 058
  154. CIMZIA [Concomitant]
     Active Substance: CERTOLIZUMAB PEGOL
     Route: 058
  155. CIMZIA [Concomitant]
     Active Substance: CERTOLIZUMAB PEGOL
     Route: 058
  156. CIMZIA [Concomitant]
     Active Substance: CERTOLIZUMAB PEGOL
     Route: 058
  157. CORTISONE ACETATE [Concomitant]
     Active Substance: CORTISONE ACETATE
     Indication: Rheumatoid arthritis
  158. CORTISONE ACETATE [Concomitant]
     Active Substance: CORTISONE ACETATE
  159. CORTISONE ACETATE [Concomitant]
     Active Substance: CORTISONE ACETATE
     Route: 061
  160. CORTISONE ACETATE [Concomitant]
     Active Substance: CORTISONE ACETATE
  161. CORTISONE ACETATE [Concomitant]
     Active Substance: CORTISONE ACETATE
  162. COSENTYX [Concomitant]
     Active Substance: SECUKINUMAB
     Indication: Rheumatoid arthritis
  163. COSENTYX [Concomitant]
     Active Substance: SECUKINUMAB
     Indication: Psoriatic arthropathy
  164. COSENTYX [Concomitant]
     Active Substance: SECUKINUMAB
  165. COSENTYX [Concomitant]
     Active Substance: SECUKINUMAB
  166. DESOXIMETASONE [Concomitant]
     Active Substance: DESOXIMETASONE
     Indication: Rheumatoid arthritis
  167. DESOXIMETASONE [Concomitant]
     Active Substance: DESOXIMETASONE
     Route: 058
  168. DESOXIMETASONE [Concomitant]
     Active Substance: DESOXIMETASONE
     Route: 058
  169. DESOXIMETASONE [Concomitant]
     Active Substance: DESOXIMETASONE
     Route: 058
  170. DESOXIMETASONE [Concomitant]
     Active Substance: DESOXIMETASONE
  171. DICLOFENAC SODIUM [Concomitant]
     Active Substance: DICLOFENAC SODIUM
     Indication: Rheumatoid arthritis
     Route: 058
  172. DICLOFENAC SODIUM [Concomitant]
     Active Substance: DICLOFENAC SODIUM
  173. DICLOFENAC SODIUM [Concomitant]
     Active Substance: DICLOFENAC SODIUM
  174. DICLOFENAC SODIUM [Concomitant]
     Active Substance: DICLOFENAC SODIUM
  175. DICLOFENAC SODIUM [Concomitant]
     Active Substance: DICLOFENAC SODIUM
  176. DICLOFENAC SODIUM [Concomitant]
     Active Substance: DICLOFENAC SODIUM
     Route: 058
  177. DICLOFENAC SODIUM [Concomitant]
     Active Substance: DICLOFENAC SODIUM
  178. DOMPERIDONE MALEATE [Concomitant]
     Active Substance: DOMPERIDONE MALEATE
     Indication: Product used for unknown indication
  179. DOMPERIDONE MALEATE [Concomitant]
     Active Substance: DOMPERIDONE MALEATE
  180. ENBREL [Concomitant]
     Active Substance: ETANERCEPT
     Indication: Rheumatoid arthritis
     Route: 058
  181. ENBREL [Concomitant]
     Active Substance: ETANERCEPT
     Route: 058
  182. ENBREL [Concomitant]
     Active Substance: ETANERCEPT
     Route: 058
  183. ENBREL [Concomitant]
     Active Substance: ETANERCEPT
     Route: 058
  184. ENBREL [Concomitant]
     Active Substance: ETANERCEPT
     Route: 058
  185. ENBREL [Concomitant]
     Active Substance: ETANERCEPT
  186. ENBREL [Concomitant]
     Active Substance: ETANERCEPT
  187. ENBREL [Concomitant]
     Active Substance: ETANERCEPT
     Route: 058
  188. ENBREL [Concomitant]
     Active Substance: ETANERCEPT
     Route: 058
  189. ENBREL [Concomitant]
     Active Substance: ETANERCEPT
     Route: 058
  190. ENBREL [Concomitant]
     Active Substance: ETANERCEPT
  191. ENBREL [Concomitant]
     Active Substance: ETANERCEPT
     Route: 058
  192. ERELZI [Concomitant]
     Active Substance: ETANERCEPT-SZZS
     Indication: Rheumatoid arthritis
     Route: 048
  193. ERELZI [Concomitant]
     Active Substance: ETANERCEPT-SZZS
  194. ERELZI [Concomitant]
     Active Substance: ETANERCEPT-SZZS
     Route: 058
  195. ERELZI [Concomitant]
     Active Substance: ETANERCEPT-SZZS
     Route: 058
  196. ERELZI [Concomitant]
     Active Substance: ETANERCEPT-SZZS
     Route: 058
  197. ERELZI [Concomitant]
     Active Substance: ETANERCEPT-SZZS
  198. ERGOCALCIFEROL [Concomitant]
     Active Substance: ERGOCALCIFEROL
     Indication: Product used for unknown indication
  199. ERGOCALCIFEROL [Concomitant]
     Active Substance: ERGOCALCIFEROL
  200. FLUMETHASONE [Concomitant]
     Active Substance: FLUMETHASONE
     Indication: Product used for unknown indication
  201. FLUMETHASONE PIVALATE [Concomitant]
     Active Substance: FLUMETHASONE PIVALATE
     Indication: Product used for unknown indication
     Route: 003
  202. FOLIC ACID [Concomitant]
     Active Substance: FOLIC ACID
     Indication: Rheumatoid arthritis
     Route: 058
  203. FOLIC ACID [Concomitant]
     Active Substance: FOLIC ACID
  204. FOLIC ACID [Concomitant]
     Active Substance: FOLIC ACID
  205. FOLIC ACID [Concomitant]
     Active Substance: FOLIC ACID
     Route: 048
  206. FOLIC ACID [Concomitant]
     Active Substance: FOLIC ACID
     Route: 058
  207. FOLIC ACID [Concomitant]
     Active Substance: FOLIC ACID
     Route: 048
  208. FOLIC ACID [Concomitant]
     Active Substance: FOLIC ACID
  209. FOLIC ACID [Concomitant]
     Active Substance: FOLIC ACID
  210. FOLIC ACID [Concomitant]
     Active Substance: FOLIC ACID
  211. FOLIC ACID [Concomitant]
     Active Substance: FOLIC ACID
     Route: 048
  212. FOLIC ACID [Concomitant]
     Active Substance: FOLIC ACID
     Route: 048
  213. FOLIC ACID [Concomitant]
     Active Substance: FOLIC ACID
     Route: 048
  214. FOLIC ACID [Concomitant]
     Active Substance: FOLIC ACID
  215. FOLIC ACID [Concomitant]
     Active Substance: FOLIC ACID
     Route: 048
  216. FOLIC ACID [Concomitant]
     Active Substance: FOLIC ACID
     Route: 048
  217. FOLIC ACID [Concomitant]
     Active Substance: FOLIC ACID
  218. FOLIC ACID [Concomitant]
     Active Substance: FOLIC ACID
  219. FOLIC ACID [Concomitant]
     Active Substance: FOLIC ACID
  220. FOLIC ACID [Concomitant]
     Active Substance: FOLIC ACID
  221. FOLIC ACID [Concomitant]
     Active Substance: FOLIC ACID
  222. FOLIC ACID [Concomitant]
     Active Substance: FOLIC ACID
     Route: 058
  223. FOLIC ACID [Concomitant]
     Active Substance: FOLIC ACID
  224. FOSAMAX [Concomitant]
     Active Substance: ALENDRONATE SODIUM
     Indication: Rheumatoid arthritis
     Route: 058
  225. FOSAMAX [Concomitant]
     Active Substance: ALENDRONATE SODIUM
     Route: 016
  226. FOSAMAX [Concomitant]
     Active Substance: ALENDRONATE SODIUM
     Route: 048
  227. GOLD [Concomitant]
     Active Substance: GOLD
     Indication: Product used for unknown indication
  228. HAIR KERATIN AMINO ACIDS GOLD COMPLEX [Concomitant]
     Active Substance: HAIR KERATIN AMINO ACIDS GOLD COMPLEX
     Indication: Product used for unknown indication
  229. GOLD SODIUM THIOMALATE [Concomitant]
     Active Substance: GOLD SODIUM THIOMALATE
     Indication: Product used for unknown indication
     Route: 030
  230. GOLD SODIUM THIOMALATE [Concomitant]
     Active Substance: GOLD SODIUM THIOMALATE
     Route: 030
  231. GOLD SODIUM THIOMALATE [Concomitant]
     Active Substance: GOLD SODIUM THIOMALATE
  232. HUMIRA [Concomitant]
     Active Substance: ADALIMUMAB
     Indication: Rheumatoid arthritis
     Route: 058
  233. HUMIRA [Concomitant]
     Active Substance: ADALIMUMAB
     Route: 058
  234. HUMIRA [Concomitant]
     Active Substance: ADALIMUMAB
     Route: 058
  235. HUMIRA [Concomitant]
     Active Substance: ADALIMUMAB
  236. HUMIRA [Concomitant]
     Active Substance: ADALIMUMAB
     Route: 058
  237. HUMIRA [Concomitant]
     Active Substance: ADALIMUMAB
     Route: 057
  238. HUMIRA [Concomitant]
     Active Substance: ADALIMUMAB
  239. HUMIRA [Concomitant]
     Active Substance: ADALIMUMAB
     Route: 058
  240. HYDROCORTISONE [Concomitant]
     Active Substance: HYDROCORTISONE
     Indication: Product used for unknown indication
  241. HYDROCORTISONE [Concomitant]
     Active Substance: HYDROCORTISONE
  242. HYDROCORTISONE PROBUTATE [Concomitant]
     Active Substance: HYDROCORTISONE PROBUTATE
     Indication: Rheumatoid arthritis
  243. HYDROCORTISONE PROBUTATE [Concomitant]
     Active Substance: HYDROCORTISONE PROBUTATE
  244. INFLIXIMAB [Concomitant]
     Active Substance: INFLIXIMAB
     Indication: Rheumatoid arthritis
  245. INFLIXIMAB [Concomitant]
     Active Substance: INFLIXIMAB
     Route: 042
  246. INFLIXIMAB [Concomitant]
     Active Substance: INFLIXIMAB
     Route: 042
  247. INFLIXIMAB [Concomitant]
     Active Substance: INFLIXIMAB
     Route: 042
  248. INFLIXIMAB [Concomitant]
     Active Substance: INFLIXIMAB
  249. INFLIXIMAB [Concomitant]
     Active Substance: INFLIXIMAB
     Route: 042
  250. INFLIXIMAB [Concomitant]
     Active Substance: INFLIXIMAB
     Route: 042
  251. INFLIXIMAB [Concomitant]
     Active Substance: INFLIXIMAB
     Route: 042
  252. INFLIXIMAB [Concomitant]
     Active Substance: INFLIXIMAB
     Route: 042
  253. INFLIXIMAB [Concomitant]
     Active Substance: INFLIXIMAB
     Route: 042
  254. INFLIXIMAB [Concomitant]
     Active Substance: INFLIXIMAB
     Route: 058
  255. ISOPROPYL ALCOHOL [Concomitant]
     Active Substance: ISOPROPYL ALCOHOL
     Indication: Rheumatoid arthritis
     Route: 061
  256. ISOPROPYL ALCOHOL [Concomitant]
     Active Substance: ISOPROPYL ALCOHOL
     Route: 061
  257. KEVZARA [Concomitant]
     Active Substance: SARILUMAB
     Indication: Product used for unknown indication
  258. LAMICTAL [Concomitant]
     Active Substance: LAMOTRIGINE
     Indication: Product used for unknown indication
     Route: 048
  259. LAMICTAL [Concomitant]
     Active Substance: LAMOTRIGINE
     Route: 048
  260. LAMICTAL [Concomitant]
     Active Substance: LAMOTRIGINE
     Route: 048
  261. LAMICTAL [Concomitant]
     Active Substance: LAMOTRIGINE
     Route: 048
  262. LAMICTAL [Concomitant]
     Active Substance: LAMOTRIGINE
     Route: 048
  263. LAMICTAL [Concomitant]
     Active Substance: LAMOTRIGINE
     Route: 048
  264. LAMICTAL [Concomitant]
     Active Substance: LAMOTRIGINE
     Route: 048
  265. LAMICTAL [Concomitant]
     Active Substance: LAMOTRIGINE
     Route: 048
  266. LAMICTAL [Concomitant]
     Active Substance: LAMOTRIGINE
     Route: 048
  267. LEFLUNOMIDE [Concomitant]
     Active Substance: LEFLUNOMIDE
     Indication: Rheumatoid arthritis
  268. LEFLUNOMIDE [Concomitant]
     Active Substance: LEFLUNOMIDE
  269. LEFLUNOMIDE [Concomitant]
     Active Substance: LEFLUNOMIDE
  270. LEFLUNOMIDE [Concomitant]
     Active Substance: LEFLUNOMIDE
     Route: 048
  271. LEFLUNOMIDE [Concomitant]
     Active Substance: LEFLUNOMIDE
  272. MAGNESIUM CITRATE [Concomitant]
     Active Substance: MAGNESIUM CITRATE
     Indication: Product used for unknown indication
  273. METFORMIN HYDROCHLORIDE [Concomitant]
     Active Substance: METFORMIN HYDROCHLORIDE
     Indication: Product used for unknown indication
  274. METFORMIN HYDROCHLORIDE [Concomitant]
     Active Substance: METFORMIN HYDROCHLORIDE
     Route: 042
  275. METFORMIN HYDROCHLORIDE [Concomitant]
     Active Substance: METFORMIN HYDROCHLORIDE
  276. METHOTREXATE [Concomitant]
     Active Substance: METHOTREXATE
     Indication: Rheumatoid arthritis
     Route: 016
  277. METHOTREXATE [Concomitant]
     Active Substance: METHOTREXATE
     Route: 058
  278. METHOTREXATE [Concomitant]
     Active Substance: METHOTREXATE
  279. METHOTREXATE [Concomitant]
     Active Substance: METHOTREXATE
     Route: 048
  280. METHOTREXATE [Concomitant]
     Active Substance: METHOTREXATE
  281. METHOTREXATE [Concomitant]
     Active Substance: METHOTREXATE
  282. METHOTREXATE [Concomitant]
     Active Substance: METHOTREXATE
  283. METHOTREXATE [Concomitant]
     Active Substance: METHOTREXATE
     Route: 048
  284. METHOTREXATE [Concomitant]
     Active Substance: METHOTREXATE
     Route: 013
  285. METHOTREXATE [Concomitant]
     Active Substance: METHOTREXATE
  286. METHOTREXATE [Concomitant]
     Active Substance: METHOTREXATE
  287. METHOTREXATE [Concomitant]
     Active Substance: METHOTREXATE
     Route: 048
  288. METHOTREXATE [Concomitant]
     Active Substance: METHOTREXATE
     Route: 048
  289. METHOTREXATE [Concomitant]
     Active Substance: METHOTREXATE
     Route: 058
  290. METHOTREXATE [Concomitant]
     Active Substance: METHOTREXATE
     Route: 048
  291. METHOTREXATE [Concomitant]
     Active Substance: METHOTREXATE
     Route: 048
  292. METHOTREXATE [Concomitant]
     Active Substance: METHOTREXATE
     Route: 048
  293. METHOTREXATE [Concomitant]
     Active Substance: METHOTREXATE
     Route: 058
  294. METHOTREXATE [Concomitant]
     Active Substance: METHOTREXATE
     Route: 058
  295. METHOTREXATE [Concomitant]
     Active Substance: METHOTREXATE
     Route: 013
  296. METHOTREXATE [Concomitant]
     Active Substance: METHOTREXATE
     Route: 048
  297. METHOTREXATE [Concomitant]
     Active Substance: METHOTREXATE
     Route: 048
  298. METHOTREXATE [Concomitant]
     Active Substance: METHOTREXATE
     Route: 048
  299. METHOTREXATE [Concomitant]
     Active Substance: METHOTREXATE
     Route: 048
  300. METHOTREXATE [Concomitant]
     Active Substance: METHOTREXATE
  301. METHYLPREDNISOLONE [Concomitant]
     Active Substance: METHYLPREDNISOLONE
     Indication: Product used for unknown indication
  302. METHYLPREDNISOLONE [Concomitant]
     Active Substance: METHYLPREDNISOLONE
  303. METHYLPREDNISOLONE SODIUM SUCCINATE [Concomitant]
     Active Substance: METHYLPREDNISOLONE SODIUM SUCCINATE
     Indication: Product used for unknown indication
  304. MINOCYCLINE HYDROCHLORIDE [Concomitant]
     Active Substance: MINOCYCLINE HYDROCHLORIDE
     Indication: Rheumatoid arthritis
  305. MINOCYCLINE HYDROCHLORIDE [Concomitant]
     Active Substance: MINOCYCLINE HYDROCHLORIDE
  306. MINOCYCLINE HYDROCHLORIDE [Concomitant]
     Active Substance: MINOCYCLINE HYDROCHLORIDE
  307. MINOCYCLINE HYDROCHLORIDE [Concomitant]
     Active Substance: MINOCYCLINE HYDROCHLORIDE
  308. MYOCHRYSINE [Concomitant]
     Active Substance: GOLD SODIUM THIOMALATE
     Indication: Rheumatoid arthritis
     Route: 030
  309. MYOCHRYSINE [Concomitant]
     Active Substance: GOLD SODIUM THIOMALATE
     Route: 030
  310. MYRBETRIQ [Concomitant]
     Active Substance: MIRABEGRON
     Indication: Product used for unknown indication
  311. MYRBETRIQ [Concomitant]
     Active Substance: MIRABEGRON
  312. MYRBETRIQ [Concomitant]
     Active Substance: MIRABEGRON
  313. MYRBETRIQ [Concomitant]
     Active Substance: MIRABEGRON
  314. MYRBETRIQ [Concomitant]
     Active Substance: MIRABEGRON
     Dosage: TABLET (EXTENDED- RELEASE)
  315. NAPROXEN [Concomitant]
     Active Substance: NAPROXEN
     Indication: Product used for unknown indication
  316. NAPROXEN [Concomitant]
     Active Substance: NAPROXEN
  317. NAPROXEN [Concomitant]
     Active Substance: NAPROXEN
     Indication: Product used for unknown indication
  318. NAPROXEN SODIUM [Concomitant]
     Active Substance: NAPROXEN SODIUM
     Indication: Rheumatoid arthritis
  319. NAPROXEN SODIUM [Concomitant]
     Active Substance: NAPROXEN SODIUM
  320. NAPROXEN SODIUM [Concomitant]
     Active Substance: NAPROXEN SODIUM
  321. NICOTINAMIDE [Concomitant]
     Active Substance: NIACINAMIDE
     Indication: Product used for unknown indication
  322. NICOTINAMIDE [Concomitant]
     Active Substance: NIACINAMIDE
  323. NUCALA [Concomitant]
     Active Substance: MEPOLIZUMAB
     Indication: Product used for unknown indication
  324. NUCALA [Concomitant]
     Active Substance: MEPOLIZUMAB
  325. OXYCODONE [Concomitant]
     Active Substance: OXYCODONE
     Indication: Product used for unknown indication
  326. OXYCODONE TEREPHTHALATE [Concomitant]
     Active Substance: OXYCODONE TEREPHTHALATE
     Indication: Product used for unknown indication
  327. PERIOGARD [Concomitant]
     Active Substance: CHLORHEXIDINE GLUCONATE
     Indication: Product used for unknown indication
  328. PHENYLEPHRINE HYDROCHLORIDE [Concomitant]
     Active Substance: PHENYLEPHRINE HYDROCHLORIDE
     Indication: Product used for unknown indication
  329. PHENYLEPHRINE HYDROCHLORIDE [Concomitant]
     Active Substance: PHENYLEPHRINE HYDROCHLORIDE
  330. PHTHALYLSULFATHIAZOLE [Concomitant]
     Active Substance: PHTHALYLSULFATHIAZOLE
     Indication: Rheumatoid arthritis
     Route: 048
  331. PHTHALYLSULFATHIAZOLE [Concomitant]
     Active Substance: PHTHALYLSULFATHIAZOLE
  332. PHTHALYLSULFATHIAZOLE [Concomitant]
     Active Substance: PHTHALYLSULFATHIAZOLE
  333. PHTHALYLSULFATHIAZOLE [Concomitant]
     Active Substance: PHTHALYLSULFATHIAZOLE
  334. PHTHALYLSULFATHIAZOLE [Concomitant]
     Active Substance: PHTHALYLSULFATHIAZOLE
     Route: 048
  335. PHTHALYLSULFATHIAZOLE [Concomitant]
     Active Substance: PHTHALYLSULFATHIAZOLE
  336. PHTHALYLSULFATHIAZOLE [Concomitant]
     Active Substance: PHTHALYLSULFATHIAZOLE
     Route: 058
  337. PHTHALYLSULFATHIAZOLE [Concomitant]
     Active Substance: PHTHALYLSULFATHIAZOLE
  338. HYDROXYCHLOROQUINE DIPHOSPHATE [Concomitant]
     Active Substance: HYDROXYCHLOROQUINE DIPHOSPHATE
     Indication: Rheumatoid arthritis
  339. PREDNISONE [Concomitant]
     Active Substance: PREDNISONE
     Indication: Rheumatoid arthritis
     Route: 048
  340. PREDNISONE [Concomitant]
     Active Substance: PREDNISONE
  341. PREDNISONE [Concomitant]
     Active Substance: PREDNISONE
  342. PREDNISONE [Concomitant]
     Active Substance: PREDNISONE
  343. PREDNISONE [Concomitant]
     Active Substance: PREDNISONE
     Route: 048
  344. PREDNISONE [Concomitant]
     Active Substance: PREDNISONE
  345. PREDNISONE [Concomitant]
     Active Substance: PREDNISONE
  346. PREDNISONE [Concomitant]
     Active Substance: PREDNISONE
     Route: 048
  347. PREDNISONE [Concomitant]
     Active Substance: PREDNISONE
  348. PSEUDOEPHEDRINE [Concomitant]
     Active Substance: PSEUDOEPHEDRINE
     Indication: Product used for unknown indication
  349. PSEUDOEPHEDRINE HYDROCHLORIDE [Concomitant]
     Active Substance: PSEUDOEPHEDRINE HYDROCHLORIDE
     Indication: Product used for unknown indication
  350. PSEUDOEPHEDRINE HYDROCHLORIDE [Concomitant]
     Active Substance: PSEUDOEPHEDRINE HYDROCHLORIDE
  351. PSEUDOEPHEDRINE HYDROCHLORIDE [Concomitant]
     Active Substance: PSEUDOEPHEDRINE HYDROCHLORIDE
  352. PSEUDOEPHEDRINE HYDROCHLORIDE [Concomitant]
     Active Substance: PSEUDOEPHEDRINE HYDROCHLORIDE
  353. RAMIPRIL [Concomitant]
     Active Substance: RAMIPRIL
     Indication: Rheumatoid arthritis
  354. RAMIPRIL [Concomitant]
     Active Substance: RAMIPRIL
     Route: 016
  355. RAMIPRIL [Concomitant]
     Active Substance: RAMIPRIL
  356. RANITIDINE [Concomitant]
     Active Substance: RANITIDINE
     Indication: Product used for unknown indication
  357. CETIRIZINE HYDROCHLORIDE\PSEUDOEPHEDRINE HYDROCHLORIDE [Concomitant]
     Active Substance: CETIRIZINE HYDROCHLORIDE\PSEUDOEPHEDRINE HYDROCHLORIDE
     Indication: Rheumatoid arthritis
  358. CETIRIZINE HYDROCHLORIDE\PSEUDOEPHEDRINE HYDROCHLORIDE [Concomitant]
     Active Substance: CETIRIZINE HYDROCHLORIDE\PSEUDOEPHEDRINE HYDROCHLORIDE
  359. CETIRIZINE HYDROCHLORIDE\PSEUDOEPHEDRINE HYDROCHLORIDE [Concomitant]
     Active Substance: CETIRIZINE HYDROCHLORIDE\PSEUDOEPHEDRINE HYDROCHLORIDE
  360. CETIRIZINE HYDROCHLORIDE\PSEUDOEPHEDRINE HYDROCHLORIDE [Concomitant]
     Active Substance: CETIRIZINE HYDROCHLORIDE\PSEUDOEPHEDRINE HYDROCHLORIDE
  361. CETIRIZINE HYDROCHLORIDE\PSEUDOEPHEDRINE HYDROCHLORIDE [Concomitant]
     Active Substance: CETIRIZINE HYDROCHLORIDE\PSEUDOEPHEDRINE HYDROCHLORIDE
  362. CETIRIZINE HYDROCHLORIDE\PSEUDOEPHEDRINE HYDROCHLORIDE [Concomitant]
     Active Substance: CETIRIZINE HYDROCHLORIDE\PSEUDOEPHEDRINE HYDROCHLORIDE
  363. CETIRIZINE HYDROCHLORIDE\PSEUDOEPHEDRINE HYDROCHLORIDE [Concomitant]
     Active Substance: CETIRIZINE HYDROCHLORIDE\PSEUDOEPHEDRINE HYDROCHLORIDE
  364. CETIRIZINE HYDROCHLORIDE\PSEUDOEPHEDRINE HYDROCHLORIDE [Concomitant]
     Active Substance: CETIRIZINE HYDROCHLORIDE\PSEUDOEPHEDRINE HYDROCHLORIDE
  365. REMICADE [Concomitant]
     Active Substance: INFLIXIMAB
     Indication: Product used for unknown indication
     Route: 058
  366. REMICADE [Concomitant]
     Active Substance: INFLIXIMAB
  367. REMICADE [Concomitant]
     Active Substance: INFLIXIMAB
  368. REMICADE [Concomitant]
     Active Substance: INFLIXIMAB
  369. REMICADE [Concomitant]
     Active Substance: INFLIXIMAB
  370. REMICADE [Concomitant]
     Active Substance: INFLIXIMAB
  371. REMICADE [Concomitant]
     Active Substance: INFLIXIMAB
  372. REMICADE [Concomitant]
     Active Substance: INFLIXIMAB
     Route: 042
  373. REMICADE [Concomitant]
     Active Substance: INFLIXIMAB
     Route: 058
  374. RIBOFLAVIN [Concomitant]
     Active Substance: RIBOFLAVIN
     Indication: Product used for unknown indication
  375. RIBOFLAVIN [Concomitant]
     Active Substance: RIBOFLAVIN
  376. RITUXIMAB [Concomitant]
     Active Substance: RITUXIMAB
     Indication: Rheumatoid arthritis
  377. RITUXIMAB [Concomitant]
     Active Substance: RITUXIMAB
  378. RITUXIMAB [Concomitant]
     Active Substance: RITUXIMAB
     Route: 058
  379. RITUXIMAB [Concomitant]
     Active Substance: RITUXIMAB
     Route: 043
  380. RITUXIMAB [Concomitant]
     Active Substance: RITUXIMAB
  381. RITUXIMAB [Concomitant]
     Active Substance: RITUXIMAB
     Route: 042
  382. RITUXIMAB [Concomitant]
     Active Substance: RITUXIMAB
  383. RITUXIMAB [Concomitant]
     Active Substance: RITUXIMAB
     Route: 042
  384. RITUXIMAB [Concomitant]
     Active Substance: RITUXIMAB
     Route: 016
  385. RITUXIMAB [Concomitant]
     Active Substance: RITUXIMAB
  386. RITUXIMAB [Concomitant]
     Active Substance: RITUXIMAB
  387. RITUXIMAB [Concomitant]
     Active Substance: RITUXIMAB
  388. RITUXIMAB [Concomitant]
     Active Substance: RITUXIMAB
  389. RITUXIMAB [Concomitant]
     Active Substance: RITUXIMAB
  390. RITUXIMAB [Concomitant]
     Active Substance: RITUXIMAB
  391. RITUXIMAB [Concomitant]
     Active Substance: RITUXIMAB
  392. RITUXIMAB [Concomitant]
     Active Substance: RITUXIMAB
     Route: 042
  393. RITUXIMAB [Concomitant]
     Active Substance: RITUXIMAB
     Route: 042
  394. RITUXIMAB [Concomitant]
     Active Substance: RITUXIMAB
     Route: 042
  395. RITUXIMAB [Concomitant]
     Active Substance: RITUXIMAB
     Route: 058
  396. RITUXIMAB [Concomitant]
     Active Substance: RITUXIMAB
  397. RITUXIMAB [Concomitant]
     Active Substance: RITUXIMAB
     Route: 043
  398. RITUXIMAB [Concomitant]
     Active Substance: RITUXIMAB
     Route: 040
  399. RITUXIMAB [Concomitant]
     Active Substance: RITUXIMAB
     Route: 042
  400. RITUXIMAB [Concomitant]
     Active Substance: RITUXIMAB
  401. RITUXIMAB [Concomitant]
     Active Substance: RITUXIMAB
     Route: 016
  402. RITUXIMAB [Concomitant]
     Active Substance: RITUXIMAB
     Route: 016
  403. RITUXIMAB [Concomitant]
     Active Substance: RITUXIMAB
     Route: 058
  404. RITUXIMAB [Concomitant]
     Active Substance: RITUXIMAB
  405. SALAZOPYRINE [Concomitant]
     Active Substance: SULFASALAZINE
     Indication: Rheumatoid arthritis
  406. SIMPONI [Concomitant]
     Active Substance: GOLIMUMAB
     Indication: Rheumatoid arthritis
     Route: 058
  407. SIMPONI [Concomitant]
     Active Substance: GOLIMUMAB
  408. SIMPONI [Concomitant]
     Active Substance: GOLIMUMAB
  409. SIMPONI [Concomitant]
     Active Substance: GOLIMUMAB
     Route: 058
  410. SIRUKUMAB [Concomitant]
     Active Substance: SIRUKUMAB
     Indication: Product used for unknown indication
  411. SIRUKUMAB [Concomitant]
     Active Substance: SIRUKUMAB
  412. SIRUKUMAB [Concomitant]
     Active Substance: SIRUKUMAB
  413. SIRUKUMAB [Concomitant]
     Active Substance: SIRUKUMAB
  414. GOLD SODIUM THIOMALATE [Concomitant]
     Active Substance: GOLD SODIUM THIOMALATE
     Indication: Rheumatoid arthritis
  415. GOLD SODIUM THIOMALATE [Concomitant]
     Active Substance: GOLD SODIUM THIOMALATE
  416. STELARA [Concomitant]
     Active Substance: USTEKINUMAB
     Indication: Product used for unknown indication
     Route: 058
  417. SULFASALAZINE [Concomitant]
     Active Substance: SULFASALAZINE
     Indication: Product used for unknown indication
  418. TETRACYCLINE HYDROCHLORIDE [Concomitant]
     Active Substance: TETRACYCLINE HYDROCHLORIDE
     Indication: Rheumatoid arthritis
  419. TOFACITINIB [Concomitant]
     Active Substance: TOFACITINIB
     Indication: Rheumatoid arthritis
  420. TOFACITINIB CITRATE [Concomitant]
     Active Substance: TOFACITINIB CITRATE
     Indication: Rheumatoid arthritis
     Route: 048
  421. TOFACITINIB CITRATE [Concomitant]
     Active Substance: TOFACITINIB CITRATE
  422. TOPIRAMATE [Concomitant]
     Active Substance: TOPIRAMATE
     Indication: Product used for unknown indication
  423. TOPIRAMATE [Concomitant]
     Active Substance: TOPIRAMATE
  424. TOPIRAMATE [Concomitant]
     Active Substance: TOPIRAMATE
  425. TOPIRAMATE [Concomitant]
     Active Substance: TOPIRAMATE
  426. TOPIRAMATE [Concomitant]
     Active Substance: TOPIRAMATE
  427. VITAMIN C [Concomitant]
     Active Substance: ASCORBIC ACID
     Indication: Product used for unknown indication
  428. XELJANZ [Concomitant]
     Active Substance: TOFACITINIB CITRATE
     Indication: Product used for unknown indication
  429. XELJANZ [Concomitant]
     Active Substance: TOFACITINIB CITRATE
  430. XELJANZ [Concomitant]
     Active Substance: TOFACITINIB CITRATE
  431. XELJANZ [Concomitant]
     Active Substance: TOFACITINIB CITRATE
     Route: 048
  432. XELJANZ [Concomitant]
     Active Substance: TOFACITINIB CITRATE
  433. XELJANZ [Concomitant]
     Active Substance: TOFACITINIB CITRATE
     Route: 048
  434. XELJANZ [Concomitant]
     Active Substance: TOFACITINIB CITRATE
     Route: 048
  435. XELJANZ [Concomitant]
     Active Substance: TOFACITINIB CITRATE
  436. XELJANZ [Concomitant]
     Active Substance: TOFACITINIB CITRATE
     Route: 042
  437. ZINC [Concomitant]
     Active Substance: ZINC
     Indication: Product used for unknown indication
     Route: 040

REACTIONS (1)
  - Death [Fatal]
